FAERS Safety Report 21809833 (Version 1)
Quarter: 2023Q1

REPORT INFORMATION
  Report Type: Spontaneous
  Country: GB (occurrence: GB)
  Receive Date: 20230103
  Receipt Date: 20230103
  Transmission Date: 20230418
  Serious: Yes (Other)
  Sender: FDA-Public Use
  Company Number: GB-MHRA-TPP12895062C8060691YC1670595192334

PATIENT
  Age: 18 Year
  Sex: Female
  Weight: 42 kg

DRUGS (18)
  1. MIRTAZAPINE [Suspect]
     Active Substance: MIRTAZAPINE
     Indication: Product used for unknown indication
     Dosage: 15 MILLIGRAM, ONCE A DAY (AT NIGHT)
     Route: 065
     Dates: start: 20221102, end: 20221209
  2. AZITHROMYCIN [Concomitant]
     Active Substance: AZITHROMYCIN
     Indication: Product used for unknown indication
     Dosage: 1 DOSAGE FORM (EVEY MONDAY, WEDNESDAY AND FRIDAY)
     Route: 065
     Dates: start: 20220221
  3. MIDAZOLAM HYDROCHLORIDE [Concomitant]
     Active Substance: MIDAZOLAM HYDROCHLORIDE
     Indication: Product used for unknown indication
     Dosage: 1 DOSAGE FORM, AS DIRECTED
     Route: 065
     Dates: start: 20221102
  4. CLOBAZAM [Concomitant]
     Active Substance: CLOBAZAM
     Indication: Product used for unknown indication
     Dosage: 3.75 MILLILITER, TWO TIMES A DAY (SLS)
     Route: 065
     Dates: start: 20220221
  5. CLOTRIMAZOLE [Concomitant]
     Active Substance: CLOTRIMAZOLE
     Indication: Product used for unknown indication
     Dosage: UNK (APPLY 2-3 TIMES/DAY)
     Route: 065
     Dates: start: 20221102
  6. AMOXICILLIN\CLAVULANATE POTASSIUM [Concomitant]
     Active Substance: AMOXICILLIN\CLAVULANATE POTASSIUM
     Indication: Product used for unknown indication
     Dosage: 1 DOSAGE FORM, 3 TIMES A DAY (TAKE ONE 3 TIMES/DAY)
     Route: 065
     Dates: start: 20221003
  7. POLYETHYLENE GLYCOL 3350\POTASSIUM CHLORIDE\SODIUM BICARBONATE\SODIUM [Concomitant]
     Active Substance: POLYETHYLENE GLYCOL 3350\POTASSIUM CHLORIDE\SODIUM BICARBONATE\SODIUM CHLORIDE
     Indication: Product used for unknown indication
     Dosage: 2 DOSAGE FORM, ONCE A DAY (UPTO 2 SACHETS DAILY)
     Route: 065
     Dates: start: 20220221
  8. DOXYCYCLINE [Concomitant]
     Active Substance: DOXYCYCLINE
     Indication: Product used for unknown indication
     Dosage: UNK (TWO NOW THEN ONE DAILY)
     Route: 065
     Dates: start: 20221128
  9. EPILIM [Concomitant]
     Active Substance: VALPROATE SODIUM
     Indication: Product used for unknown indication
     Dosage: 2 DOSAGE FORM, TWO TIMES A DAY (TAKE TWO TO BE TAKEN TWICE DAILY)
     Route: 065
     Dates: start: 20220221
  10. FLUCONAZOLE [Concomitant]
     Active Substance: FLUCONAZOLE
     Indication: Product used for unknown indication
     Dosage: 1 DOSAGE FORM, AS DIRECTED
     Route: 065
     Dates: start: 20221102
  11. FLUTICASONE FUROATE [Concomitant]
     Active Substance: FLUTICASONE FUROATE
     Indication: Product used for unknown indication
     Dosage: UNK (TWO SPRAY ACTUATIONS (55 MICROGRAMS) IN EACH NO..)
     Route: 065
     Dates: start: 20220221
  12. CHOLECALCIFEROL [Concomitant]
     Active Substance: CHOLECALCIFEROL
     Indication: Product used for unknown indication
     Dosage: 6 DOSAGE FORM, ONCE A DAY (6 DROPS (400UNITS))
     Route: 065
     Dates: start: 20220221
  13. LACOSAMIDE [Concomitant]
     Active Substance: LACOSAMIDE
     Indication: Product used for unknown indication
     Dosage: 1 DOSAGE FORM, TWO TIMES A DAY
     Route: 065
     Dates: start: 20220823
  14. MELATONIN [Concomitant]
     Active Substance: MELATONIN
     Indication: Product used for unknown indication
     Dosage: 10 MILLIGRAM, ONCE A DAY (10MG NOCTE ALCOHOL FREE)
     Route: 065
     Dates: start: 20220221
  15. MIDAZOLAM [Concomitant]
     Active Substance: MIDAZOLAM
     Dosage: ONE TO BE USED AS DIRECTED
     Dates: start: 20220221, end: 20221102
  16. PROPRANOLOL [Concomitant]
     Active Substance: PROPRANOLOL HYDROCHLORIDE
     Dosage: TAKE ONE 3 TIMES/DAY
     Dates: start: 20220711, end: 20221102
  17. TOPAMAX [Concomitant]
     Active Substance: TOPIRAMATE
     Dosage: AS DIRECTED
     Dates: start: 20220221, end: 20221102
  18. TOPIRAMATE [Concomitant]
     Active Substance: TOPIRAMATE
     Dosage: USE AS DIRECTED
     Dates: start: 20220809, end: 20221102

REACTIONS (1)
  - Jaundice [Unknown]
